FAERS Safety Report 19659709 (Version 1)
Quarter: 2021Q3

REPORT INFORMATION
  Report Type: Spontaneous
  Country: IL (occurrence: IL)
  Receive Date: 20210804
  Receipt Date: 20210804
  Transmission Date: 20211014
  Serious: Yes (Other)
  Sender: FDA-Public Use
  Company Number: IL-009507513-2107ISR008582

PATIENT
  Age: 50 Year
  Sex: Female

DRUGS (3)
  1. LENVATINIB MESYLATE [Suspect]
     Active Substance: LENVATINIB MESYLATE
     Indication: PLEURAL MESOTHELIOMA MALIGNANT
     Dosage: 20 MILLIGRAM, QD
     Route: 048
  2. PEMBROLIZUMAB. [Suspect]
     Active Substance: PEMBROLIZUMAB
     Indication: PLEURAL MESOTHELIOMA MALIGNANT
     Dosage: 200 MILLIGRAM, ON DAY 1, EVERY 21 DAYS FOR 5 CYCLES
  3. IPILIMUMAB [Suspect]
     Active Substance: IPILIMUMAB
     Indication: PLEURAL MESOTHELIOMA MALIGNANT
     Dosage: 1 MILLIGRAM/KILOGRAM EVERY 4 WEEKS

REACTIONS (2)
  - Off label use [Unknown]
  - Immune-mediated hepatic disorder [Unknown]
